FAERS Safety Report 8561601-2 (Version None)
Quarter: 2012Q3

REPORT INFORMATION
  Report Type: 
  Country: None (occurrence: None)
  Receive Date: 20120802
  Receipt Date: 20120712
  Transmission Date: 20120928
  Serious: No
  Sender: FDA-Public Use
  Company Number: US-ASTRAZENECA-2012SE48895

PATIENT
  Age: 52 Year
  Sex: Female

DRUGS (2)
  1. CHLORPROMAZINE HCL [Concomitant]
  2. SEROQUEL XR [Suspect]
     Route: 048

REACTIONS (3)
  - AURICULAR SWELLING [None]
  - DRUG HYPERSENSITIVITY [None]
  - OEDEMA PERIPHERAL [None]
